FAERS Safety Report 21193100 (Version 2)
Quarter: 2022Q3

REPORT INFORMATION
  Report Type: Spontaneous
  Country: US (occurrence: None)
  Receive Date: 20220810
  Receipt Date: 20220901
  Transmission Date: 20221026
  Serious: No
  Sender: FDA-Public Use
  Company Number: 2022A258751

PATIENT
  Age: 84 Year
  Sex: Female

DRUGS (4)
  1. BYDUREON BCISE [Suspect]
     Active Substance: EXENATIDE
     Indication: Type 2 diabetes mellitus
     Route: 058
  2. BYDUREON [Concomitant]
     Active Substance: EXENATIDE
     Indication: Type 2 diabetes mellitus
     Route: 058
  3. INSULIN NOS [Concomitant]
     Active Substance: INSULIN NOS
     Indication: Blood glucose abnormal
  4. GLIPIZIDE [Concomitant]
     Active Substance: GLIPIZIDE
     Indication: Blood glucose abnormal

REACTIONS (3)
  - Injection site pain [Recovered/Resolved]
  - Drug dose omission by device [Not Recovered/Not Resolved]
  - Device malfunction [Unknown]

NARRATIVE: CASE EVENT DATE: 20220101
